FAERS Safety Report 6336881-4 (Version None)
Quarter: 2009Q3

REPORT INFORMATION
  Report Type: 
  Country: None (occurrence: None)
  Receive Date: 20090901
  Receipt Date: 20090820
  Transmission Date: 20100115
  Serious: Yes (Hospitalization)
  Sender: FDA-Public Use
  Company Number: PHHY2009ES35129

PATIENT
  Age: 65 Year
  Sex: Male

DRUGS (6)
  1. ANAFRANIL [Interacting]
     Indication: DEPRESSION
     Dosage: 25 MG, QID
     Route: 048
  2. TEGRETOL [Suspect]
     Dosage: 200 MG, BID
     Route: 048
  3. OXYCODONE [Interacting]
     Indication: POLYNEUROPATHY
     Dosage: 10 MG, BID
     Route: 048
     Dates: end: 20090619
  4. GABAPENTIN [Interacting]
     Indication: POLYNEUROPATHY
     Dosage: 400 MG, TID
     Route: 048
  5. CELLCEPT [Concomitant]
     Indication: LIVER TRANSPLANT
     Dosage: 500 MG, QID
     Route: 048
  6. OMEPRAZOL ^ACYFABRIK^ [Concomitant]
     Dosage: 20 MG, QD
     Route: 048

REACTIONS (3)
  - CONFUSIONAL STATE [None]
  - DEPRESSED LEVEL OF CONSCIOUSNESS [None]
  - DRUG INTERACTION [None]
